FAERS Safety Report 25063450 (Version 1)
Quarter: 2025Q1

REPORT INFORMATION
  Report Type: Spontaneous
  Country: CN (occurrence: CN)
  Receive Date: 20250311
  Receipt Date: 20250311
  Transmission Date: 20250408
  Serious: Yes (Other)
  Sender: BRACCO
  Company Number: CN-BRACCO-2025CN01208

PATIENT
  Age: 32 Year
  Sex: Male

DRUGS (3)
  1. SULFUR HEXAFLUORIDE [Suspect]
     Active Substance: SULFUR HEXAFLUORIDE
     Indication: Ultrasound thyroid
     Route: 042
     Dates: start: 20250224, end: 20250224
  2. SULFUR HEXAFLUORIDE [Suspect]
     Active Substance: SULFUR HEXAFLUORIDE
     Indication: Ultrasound thyroid
     Route: 042
     Dates: start: 20250224, end: 20250224
  3. SULFUR HEXAFLUORIDE [Suspect]
     Active Substance: SULFUR HEXAFLUORIDE
     Indication: Ultrasound thyroid
     Route: 042
     Dates: start: 20250224, end: 20250224

REACTIONS (5)
  - Off label use [Recovered/Resolved]
  - Myocardial injury [Unknown]
  - Pulse absent [Recovered/Resolved]
  - Flushing [Recovered/Resolved]
  - Dyspnoea [Recovered/Resolved]

NARRATIVE: CASE EVENT DATE: 20250224
